FAERS Safety Report 6007591-8 (Version None)
Quarter: 2008Q4

REPORT INFORMATION
  Report Type: 
  Country: None (occurrence: None)
  Receive Date: 20081217
  Receipt Date: 20080515
  Transmission Date: 20090506
  Serious: No
  Sender: FDA-Public Use
  Company Number: US-ASTRAZENECA-2008UW10040

PATIENT
  Age: 74 Year
  Sex: Male
  Weight: 103.4 kg

DRUGS (9)
  1. CRESTOR [Suspect]
     Indication: HYPERCHOLESTEROLAEMIA
     Route: 048
     Dates: start: 20080417
  2. TOPROL-XL [Concomitant]
     Route: 048
  3. COUMADIN [Concomitant]
  4. DIGOXIN [Concomitant]
  5. LASIX [Concomitant]
  6. COLCHICINE [Concomitant]
  7. LOPID [Concomitant]
  8. TRAMADOL HCL [Concomitant]
  9. ASPIRIN [Concomitant]

REACTIONS (2)
  - FLATULENCE [None]
  - SLEEP DISORDER [None]
